FAERS Safety Report 6834423-8 (Version None)
Quarter: 2010Q3

REPORT INFORMATION
  Report Type: 
  Country: None (occurrence: None)
  Receive Date: 20100712
  Receipt Date: 20070919
  Transmission Date: 20110219
  Serious: Yes (Other)
  Sender: FDA-Public Use
  Company Number: US-PFIZER INC-2007025560

PATIENT
  Sex: Female
  Weight: 65.8 kg

DRUGS (11)
  1. CHANTIX [Suspect]
     Indication: EX-TOBACCO USER
     Dates: start: 20070312, end: 20070324
  2. ERYTHROMYCIN [Suspect]
  3. TETRACYCLINE [Suspect]
  4. COMBIVENT [Concomitant]
  5. ALBUTEROL [Concomitant]
  6. MONTELUKAST [Concomitant]
  7. CLARITIN [Concomitant]
  8. FLONASE [Concomitant]
  9. ADVAIR DISKUS 100/50 [Concomitant]
  10. XANAX [Concomitant]
  11. TRAVATAN [Concomitant]

REACTIONS (3)
  - DYSPNOEA [None]
  - PRURITUS [None]
  - RASH [None]
